FAERS Safety Report 8269865-X (Version None)
Quarter: 2012Q2

REPORT INFORMATION
  Report Type: 
  Country: None (occurrence: None)
  Receive Date: 20120410
  Receipt Date: 20120406
  Transmission Date: 20120825
  Serious: No
  Sender: FDA-Public Use
  Company Number: US-PFIZER INC-2012087554

PATIENT
  Sex: Female
  Weight: 77.098 kg

DRUGS (1)
  1. PREMARIN [Suspect]
     Indication: VULVOVAGINAL MYCOTIC INFECTION
     Dosage: UNK
     Route: 067
     Dates: start: 20120406

REACTIONS (1)
  - PYREXIA [None]
